FAERS Safety Report 16845276 (Version 1)
Quarter: 2019Q3

REPORT INFORMATION
  Report Type: Spontaneous
  Country: CN (occurrence: CN)
  Receive Date: 20190924
  Receipt Date: 20190924
  Transmission Date: 20191005
  Serious: Yes (Other)
  Sender: FDA-Public Use
  Company Number: CN-PFIZER INC-2019399395

PATIENT
  Age: 16 Year
  Sex: Male
  Weight: 80 kg

DRUGS (3)
  1. VITAMIN C [Suspect]
     Active Substance: ASCORBIC ACID
     Indication: URTICARIA
     Dosage: 2 G, 1X/DAY
     Route: 041
     Dates: start: 20190906, end: 20190906
  2. SODIUM CHLORIDE. [Concomitant]
     Active Substance: SODIUM CHLORIDE
     Indication: URTICARIA
     Dosage: 250.000 ML, 1X/DAY
     Route: 041
     Dates: start: 20190906, end: 20190906
  3. SOLU-MEDROL [Suspect]
     Active Substance: METHYLPREDNISOLONE SODIUM SUCCINATE
     Indication: URTICARIA
     Dosage: 60 MG, 1X/DAY
     Route: 041
     Dates: start: 20190906, end: 20190906

REACTIONS (3)
  - Oropharyngeal discomfort [Recovering/Resolving]
  - Hypoaesthesia [Recovering/Resolving]
  - Chest discomfort [Recovering/Resolving]

NARRATIVE: CASE EVENT DATE: 20190906
